FAERS Safety Report 7842958-4 (Version None)
Quarter: 2011Q4

REPORT INFORMATION
  Report Type: 
  Country: None (occurrence: None)
  Receive Date: 20111025
  Receipt Date: 20111012
  Transmission Date: 20120403
  Serious: Yes (Other)
  Sender: FDA-Public Use
  Company Number: CA-ELI_LILLY_AND_COMPANY-CA201110002788

PATIENT
  Sex: Female

DRUGS (6)
  1. ZYPREXA [Suspect]
     Dosage: 2.5 MG, QD
  2. EFFEXOR [Concomitant]
  3. TOPAMAX [Concomitant]
  4. CELEXA [Concomitant]
  5. ZYPREXA [Suspect]
     Indication: DEPRESSION
     Dosage: 5 MG, QD
     Dates: start: 19990101
  6. QUETIAPINE [Concomitant]

REACTIONS (11)
  - MICROALBUMINURIA [None]
  - HYPERTENSION [None]
  - WEIGHT INCREASED [None]
  - DIABETES MELLITUS [None]
  - WHITE BLOOD CELL COUNT DECREASED [None]
  - DIABETIC RETINOPATHY [None]
  - DYSLIPIDAEMIA [None]
  - OFF LABEL USE [None]
  - ORAL HERPES [None]
  - VAGINAL INFECTION [None]
  - NEUTROPHIL COUNT DECREASED [None]
